FAERS Safety Report 21646574 (Version 1)
Quarter: 2022Q4

REPORT INFORMATION
  Report Type: Spontaneous
  Country: US (occurrence: US)
  Receive Date: 20221127
  Receipt Date: 20221127
  Transmission Date: 20230112
  Serious: No
  Sender: FDA-Public Use
  Company Number: US-SA-SAC20221124001636

PATIENT
  Age: 47 Year
  Sex: Female

DRUGS (34)
  1. AUBAGIO [Suspect]
     Active Substance: TERIFLUNOMIDE
     Indication: Multiple sclerosis
     Dosage: 1 DF, QD
     Route: 048
     Dates: start: 20140528
  2. THIAMINE DISULFIDE [Suspect]
     Active Substance: THIAMINE DISULFIDE
  3. FINASTERIDE [Concomitant]
     Active Substance: FINASTERIDE
     Indication: Alopecia
     Dosage: 1 MG DAILY
  4. MINOXIDIL [Concomitant]
     Active Substance: MINOXIDIL
  5. LAMICTAL [Concomitant]
     Active Substance: LAMOTRIGINE
  6. TRESIBA [Concomitant]
     Active Substance: INSULIN DEGLUDEC
  7. REGLAN [Concomitant]
     Active Substance: METOCLOPRAMIDE HYDROCHLORIDE
  8. AMITIZA [Concomitant]
     Active Substance: LUBIPROSTONE
  9. VITAMIN B6 [Concomitant]
     Active Substance: PYRIDOXINE HYDROCHLORIDE
  10. AMITRIPTYLINE [Concomitant]
     Active Substance: AMITRIPTYLINE
  11. CYANOCOBALAMIN [Concomitant]
     Active Substance: CYANOCOBALAMIN
  12. OMEPRAZOLE [Concomitant]
     Active Substance: OMEPRAZOLE
  13. LASIX [Concomitant]
     Active Substance: FUROSEMIDE
  14. VASCEPA [Concomitant]
     Active Substance: ICOSAPENT ETHYL
  15. OZEMPIC [Concomitant]
     Active Substance: SEMAGLUTIDE
  16. FARXIGA [Concomitant]
     Active Substance: DAPAGLIFLOZIN PROPANEDIOL
  17. ZOFRAN [Concomitant]
     Active Substance: ONDANSETRON HYDROCHLORIDE
  18. VITAMIN A [Concomitant]
     Active Substance: VITAMIN A
  19. VITAMIN D3 [Concomitant]
     Active Substance: CHOLECALCIFEROL
  20. TYLENOL [Concomitant]
     Active Substance: ACETAMINOPHEN
  21. RITALIN [Concomitant]
     Active Substance: METHYLPHENIDATE HYDROCHLORIDE
  22. RANEXA [Concomitant]
     Active Substance: RANOLAZINE
  23. OMEPRAZOLE [Concomitant]
     Active Substance: OMEPRAZOLE
  24. PHENERGAN [Concomitant]
     Active Substance: PROMETHAZINE HYDROCHLORIDE
  25. MS CONTIN [Concomitant]
     Active Substance: MORPHINE SULFATE
  26. METOPROLOL TARTRATE [Concomitant]
     Active Substance: METOPROLOL TARTRATE
  27. LEXAPRO [Concomitant]
     Active Substance: ESCITALOPRAM OXALATE
  28. LANTUS [Concomitant]
     Active Substance: INSULIN GLARGINE
  29. LAMOTRIGINE [Concomitant]
     Active Substance: LAMOTRIGINE
  30. HUMALOG [Concomitant]
     Active Substance: INSULIN LISPRO
  31. FENOFIBRATE [Concomitant]
     Active Substance: FENOFIBRATE
  32. ASPIRIN [Concomitant]
     Active Substance: ASPIRIN
  33. ATORVASTATIN CALCIUM [Concomitant]
     Active Substance: ATORVASTATIN CALCIUM
  34. VITAMIN E [Concomitant]
     Active Substance: .ALPHA.-TOCOPHEROL

REACTIONS (2)
  - Alopecia [Unknown]
  - Rash [Not Recovered/Not Resolved]
